FAERS Safety Report 12394564 (Version 1)
Quarter: 2016Q2

REPORT INFORMATION
  Report Type: Spontaneous
  Country: US (occurrence: US)
  Receive Date: 20160523
  Receipt Date: 20160523
  Transmission Date: 20160815
  Serious: Yes (Hospitalization)
  Sender: FDA-Public Use
  Company Number: US-LUNDBECK-DKLU2013967

PATIENT
  Age: 55 Year
  Sex: Female

DRUGS (1)
  1. NORTHERA [Suspect]
     Active Substance: DROXIDOPA
     Indication: PRODUCT USED FOR UNKNOWN INDICATION
     Route: 048
     Dates: start: 201412

REACTIONS (3)
  - Cerebrovascular accident [Unknown]
  - Seizure [Unknown]
  - Syncope [Unknown]

NARRATIVE: CASE EVENT DATE: 201603
